FAERS Safety Report 19238225 (Version 1)
Quarter: 2021Q2

REPORT INFORMATION
  Report Type: Spontaneous
  Country: US (occurrence: US)
  Receive Date: 20210510
  Receipt Date: 20210510
  Transmission Date: 20210717
  Serious: Yes (Other)
  Sender: FDA-Public Use
  Company Number: None

PATIENT
  Age: 47 Year
  Sex: Female
  Weight: 83.7 kg

DRUGS (1)
  1. EMEND [Suspect]
     Active Substance: APREPITANT
     Indication: BREAST CANCER
     Dosage: ?          OTHER FREQUENY:ONCE BEFORE CHEMO;?
     Route: 042
     Dates: start: 20210506, end: 20210506

REACTIONS (5)
  - Flushing [None]
  - Feeling abnormal [None]
  - Paraesthesia [None]
  - Infusion related reaction [None]
  - Feeling jittery [None]

NARRATIVE: CASE EVENT DATE: 20210506
